FAERS Safety Report 11259444 (Version 1)
Quarter: 2015Q3

REPORT INFORMATION
  Report Type: Spontaneous
  Country: US (occurrence: None)
  Receive Date: 20150709
  Receipt Date: 20150709
  Transmission Date: 20151125
  Serious: Yes (Life-Threatening, Other)
  Sender: FDA-Public Use
  Company Number: None

PATIENT
  Age: 50 Year
  Sex: Male
  Weight: 142.88 kg

DRUGS (24)
  1. METFORMIN [Concomitant]
     Active Substance: METFORMIN HYDROCHLORIDE
  2. MAGNESIUM HYDROXIDE. [Concomitant]
     Active Substance: MAGNESIUM HYDROXIDE
  3. GABAPENTIN. [Concomitant]
     Active Substance: GABAPENTIN
  4. DOCUSATE [Concomitant]
     Active Substance: DOCUSATE
  5. AMIODARONE [Concomitant]
     Active Substance: AMIODARONE
  6. OXYCODONE AND ACETAMINOPHEN [Concomitant]
     Active Substance: ACETAMINOPHEN\OXYCODONE\OXYCODONE HYDROCHLORIDE
  7. DAPTOMYCIN. [Suspect]
     Active Substance: DAPTOMYCIN
     Indication: ARTHRITIS BACTERIAL
     Route: 042
     Dates: start: 20150608, end: 20150608
  8. INSULIN LISPRO [Concomitant]
     Active Substance: INSULIN LISPRO
  9. FUROSEMIDE. [Concomitant]
     Active Substance: FUROSEMIDE
  10. ENOXAPARIN [Concomitant]
     Active Substance: ENOXAPARIN
  11. OXYCODONE [Concomitant]
     Active Substance: OXYCODONE
  12. FLONASE [Concomitant]
     Active Substance: FLUTICASONE PROPIONATE
  13. CLONIDINE. [Concomitant]
     Active Substance: CLONIDINE
  14. GLYBURIDE. [Concomitant]
     Active Substance: GLYBURIDE
  15. PAROXETINE [Concomitant]
     Active Substance: PAROXETINE\PAROXETINE HYDROCHLORIDE
  16. MULTIVITAMIN [Concomitant]
     Active Substance: VITAMINS
  17. HYDROCHLOROTHIZAIDE [Concomitant]
  18. VANCOMYCIN [Concomitant]
     Active Substance: VANCOMYCIN
  19. PRAVASTATIN [Concomitant]
     Active Substance: PRAVASTATIN\PRAVASTATIN SODIUM
  20. POTASSIUM CHLORIDE. [Concomitant]
     Active Substance: POTASSIUM CHLORIDE
  21. MAGNESIUM SULFATE/DEXTROSE [Concomitant]
  22. FERROUS SULFATE [Concomitant]
     Active Substance: FERROUS SULFATE\FERROUS SULFATE, DRIED
  23. ASCORBIC ACID. [Concomitant]
     Active Substance: ASCORBIC ACID
  24. PEG 3350 [Concomitant]
     Active Substance: POLYETHYLENE GLYCOL 3350

REACTIONS (4)
  - Hyperhidrosis [None]
  - Vomiting [None]
  - Blood pressure decreased [None]
  - Dizziness [None]

NARRATIVE: CASE EVENT DATE: 20150608
